FAERS Safety Report 6355743-X (Version None)
Quarter: 2009Q3

REPORT INFORMATION
  Report Type: 
  Country: None (occurrence: None)
  Receive Date: 20090915
  Receipt Date: 20090902
  Transmission Date: 20100115
  Serious: Yes (Hospitalization)
  Sender: FDA-Public Use
  Company Number: FR-BIOGENIDEC-2009BI016462

PATIENT
  Age: 45 Year
  Sex: Female
  Weight: 57 kg

DRUGS (5)
  1. NATALIZUMAB [Suspect]
     Indication: MULTIPLE SCLEROSIS
     Route: 042
     Dates: start: 20061124
  2. LORAZEPAM [Concomitant]
     Indication: AFFECTIVE DISORDER
     Route: 048
     Dates: start: 20070401
  3. MAGNESIUM + VITAMIN B6 [Concomitant]
     Indication: PAIN
     Route: 048
     Dates: start: 20090401
  4. DIANTALVIC [Concomitant]
     Indication: PAIN
     Route: 048
     Dates: start: 20090401
  5. LUTHERAN [Concomitant]
     Indication: CONTRACEPTION
     Route: 048
     Dates: start: 20061218

REACTIONS (1)
  - PROGRESSIVE MULTIFOCAL LEUKOENCEPHALOPATHY [None]
